FAERS Safety Report 9008183 (Version 2)
Quarter: 2013Q2

REPORT INFORMATION
  Report Type: Spontaneous
  Country: US (occurrence: None)
  Receive Date: 20120518
  Receipt Date: 20130220
  Transmission Date: 20140414
  Serious: Yes (Other)
  Sender: FDA-Public Use
  Company Number: 1000028887

PATIENT
  Age: 49 Year
  Sex: Female

DRUGS (3)
  1. VIIBRYD [Suspect]
     Indication: DEPRESSION
     Route: 048
     Dates: start: 201203, end: 201204
  2. CIPRO(CIPROFLOXACIN) (CIPROFLOXACIN) [Concomitant]
  3. FLAGYL (METRONIDAZOLE) (METRONIDAZOLE) [Concomitant]

REACTIONS (1)
  - Diarrhoea [None]
